FAERS Safety Report 20282107 (Version 3)
Quarter: 2022Q1

REPORT INFORMATION
  Report Type: Spontaneous
  Country: FR (occurrence: FR)
  Receive Date: 20220103
  Receipt Date: 20220113
  Transmission Date: 20220423
  Serious: Yes (Hospitalization)
  Sender: FDA-Public Use
  Company Number: None

PATIENT
  Age: 87 Year
  Sex: Male

DRUGS (2)
  1. ARIXTRA [Interacting]
     Active Substance: FONDAPARINUX SODIUM
     Indication: Thrombosis prophylaxis
     Dosage: 1 DOSAGE FORM, QD, 1/JOUR
     Route: 058
     Dates: start: 20210611, end: 20210614
  2. ASPIRIN\CLOPIDOGREL [Interacting]
     Active Substance: ASPIRIN\CLOPIDOGREL
     Indication: Myocardial ischaemia
     Dosage: 1 DOSAGE FORM, QD, 1 CP/J, DOSAGE INCONNU
     Route: 048
     Dates: end: 20210614

REACTIONS (2)
  - Rectal haemorrhage [Recovered/Resolved]
  - Drug interaction [Unknown]

NARRATIVE: CASE EVENT DATE: 20210612
